FAERS Safety Report 24789362 (Version 1)
Quarter: 2024Q4

REPORT INFORMATION
  Report Type: Spontaneous
  Country: CN (occurrence: CN)
  Receive Date: 20241230
  Receipt Date: 20241230
  Transmission Date: 20250114
  Serious: Yes (Hospitalization, Other)
  Sender: GLAXOSMITHKLINE
  Company Number: CN-GSK-CN2024APC163196

PATIENT

DRUGS (2)
  1. FLUTICASONE PROPIONATE\SALMETEROL XINAFOATE [Suspect]
     Active Substance: FLUTICASONE PROPIONATE\SALMETEROL XINAFOATE
     Indication: Chronic obstructive pulmonary disease
     Dosage: 1 DF, BID, 250
     Route: 055
     Dates: start: 20221101, end: 20221111
  2. FLUTICASONE PROPIONATE\SALMETEROL XINAFOATE [Suspect]
     Active Substance: FLUTICASONE PROPIONATE\SALMETEROL XINAFOATE
     Indication: Pulmonary function test

REACTIONS (3)
  - Dyspnoea [Recovering/Resolving]
  - Candida infection [Recovered/Resolved]
  - Wrong technique in product usage process [Unknown]
